FAERS Safety Report 8621807-0 (Version None)
Quarter: 2012Q3

REPORT INFORMATION
  Report Type: 
  Country: None (occurrence: None)
  Receive Date: 20120821
  Receipt Date: 20120821
  Transmission Date: 20120928
  Serious: Yes (Other)
  Sender: FDA-Public Use
  Company Number: None

PATIENT
  Age: 28 Year
  Sex: Female
  Weight: 45.8133 kg

DRUGS (1)
  1. STANNOUS FLUORIDE TOOTHPASTE [Suspect]

REACTIONS (3)
  - GINGIVAL ERYTHEMA [None]
  - GINGIVAL SWELLING [None]
  - CHEMICAL INJURY [None]
